FAERS Safety Report 4653992-X (Version None)
Quarter: 2005Q2

REPORT INFORMATION
  Report Type: 
  Country: None (occurrence: None)
  Receive Date: 20050504
  Receipt Date: 20050422
  Transmission Date: 20051028
  Serious: Yes (Life-Threatening, Other)
  Sender: FDA-Public Use
  Company Number: HQWYE250925APR05

PATIENT
  Age: 57 Year
  Sex: Female

DRUGS (5)
  1. AMIODARONE HCL [Suspect]
     Indication: ATRIAL FIBRILLATION
     Dosage: 300 MG 1X PER 1 DAY, INTRAVENOUS
     Route: 042
     Dates: start: 20050324, end: 20050324
  2. WARFARIN SODIUM [Concomitant]
  3. OMEPRAZOLE [Concomitant]
  4. SIMVASTATIN [Concomitant]
  5. RAMIPRIL [Concomitant]

REACTIONS (3)
  - CONJUNCTIVITIS [None]
  - HYPERSENSITIVITY [None]
  - HYPOTENSION [None]
